FAERS Safety Report 5051055-5 (Version None)
Quarter: 2006Q3

REPORT INFORMATION
  Report Type: 
  Country: None (occurrence: None)
  Receive Date: 20060714
  Receipt Date: 20060703
  Transmission Date: 20061208
  Serious: Yes (Other)
  Sender: FDA-Public Use
  Company Number: PHRM2006FR02040

PATIENT
  Age: 52 Year
  Sex: Female

DRUGS (2)
  1. COTAREG [Suspect]
     Indication: HYPERTENSION
     Dosage: 1 DF, QD
     Route: 048
     Dates: start: 20060308, end: 20060601
  2. NEXEN [Concomitant]
     Indication: BACK PAIN
     Dosage: UNK, UNK
     Route: 048
     Dates: start: 20060620, end: 20060601

REACTIONS (4)
  - DIZZINESS [None]
  - FATIGUE [None]
  - MALAISE [None]
  - SENSE OF OPPRESSION [None]
